FAERS Safety Report 5157746-X (Version None)
Quarter: 2006Q4

REPORT INFORMATION
  Report Type: 
  Country: None (occurrence: None)
  Receive Date: 20061116
  Receipt Date: 20061102
  Transmission Date: 20070319
  Serious: Yes (Other)
  Sender: FDA-Public Use
  Company Number: 061106-0000969

PATIENT

DRUGS (1)
  1. NEOPROFEN [Suspect]
     Indication: DRUG USE FOR UNKNOWN INDICATION
     Dosage: DAYS 2,3,4

REACTIONS (1)
  - GASTROINTESTINAL PERFORATION [None]
